FAERS Safety Report 7511472-8 (Version None)
Quarter: 2011Q2

REPORT INFORMATION
  Report Type: 
  Country: None (occurrence: None)
  Receive Date: 20110531
  Receipt Date: 20110517
  Transmission Date: 20111010
  Serious: Yes (Other)
  Sender: FDA-Public Use
  Company Number: JP-JNJFOC-20110511675

PATIENT

DRUGS (3)
  1. PIPERACILLIN AND TAZOBACTAM [Suspect]
     Indication: BIOPSY PROSTATE
     Route: 042
  2. LEVOFLOXACIN [Suspect]
     Indication: BIOPSY PROSTATE
     Dosage: PATIENT RECEIVED EITHER 100MG OR 500 MG 30 MIN BEFORE MEALS FOR 3 DAYS
     Route: 048
  3. PIPERACILLIN AND TAZOBACTAM [Suspect]
     Route: 042

REACTIONS (1)
  - PROSTATITIS [None]
